FAERS Safety Report 6211298-1 (Version None)
Quarter: 2009Q2

REPORT INFORMATION
  Report Type: 
  Country: None (occurrence: None)
  Receive Date: 20090528
  Receipt Date: 20090518
  Transmission Date: 20091009
  Serious: Yes (Other)
  Sender: FDA-Public Use
  Company Number: ADE2009-0627

PATIENT
  Age: 85 Year
  Sex: Male

DRUGS (2)
  1. MIRTAZAPINE [Suspect]
     Indication: DEPRESSION
     Dosage: 15MG - DAILY - UNK
  2. MIRTAZAPINE [Suspect]
     Indication: SOMNOLENCE
     Dosage: 15MG - DAILY - UNK

REACTIONS (6)
  - ALANINE AMINOTRANSFERASE INCREASED [None]
  - ASPARTATE AMINOTRANSFERASE INCREASED [None]
  - BLOOD TESTOSTERONE DECREASED [None]
  - BREAST PAIN [None]
  - GAMMA-GLUTAMYLTRANSFERASE INCREASED [None]
  - GYNAECOMASTIA [None]
